FAERS Safety Report 5828518-5 (Version None)
Quarter: 2008Q3

REPORT INFORMATION
  Report Type: 
  Country: None (occurrence: None)
  Receive Date: 20080729
  Receipt Date: 20080716
  Transmission Date: 20090109
  Serious: Yes (Hospitalization)
  Sender: FDA-Public Use
  Company Number: 08P-020-0463795-00

PATIENT
  Age: 8 Month
  Sex: Male
  Weight: 7 kg

DRUGS (3)
  1. SYNAGIS [Suspect]
     Dosage: (1 DOSAGE FORMS, 1 APPLICATION PER MONTH),  INTRAMUSCULAR
     Route: 030
     Dates: start: 20080401, end: 20080401
  2. SYNAGIS [Suspect]
     Dosage: (1 DOSAGE FORMS, 1 APPLICATION PER MONTH),  INTRAMUSCULAR
     Route: 030
     Dates: start: 20080528, end: 20080528
  3. SYNAGIS [Suspect]
     Dosage: (1 DOSAGE FORMS, 1 APPLICATION PER MONTH),  INTRAMUSCULAR
     Route: 030
     Dates: start: 20080627

REACTIONS (2)
  - BRONCHIOLITIS [None]
  - SNEEZING [None]
